FAERS Safety Report 9789501 (Version 5)
Quarter: 2014Q2

REPORT INFORMATION
  Report Type: Spontaneous
  Country: US (occurrence: US)
  Receive Date: 20131231
  Receipt Date: 20140414
  Transmission Date: 20141212
  Serious: Yes (Hospitalization)
  Sender: FDA-Public Use
  Company Number: US-BIOGENIDEC-2013BI123699

PATIENT
  Age: 53 Year
  Sex: Female

DRUGS (20)
  1. AVONEX [Suspect]
     Indication: MULTIPLE SCLEROSIS
     Route: 030
     Dates: start: 20120116
  2. AVONEX [Suspect]
     Indication: MULTIPLE SCLEROSIS
     Route: 030
     Dates: start: 20130105
  3. WELLBUTRIN [Concomitant]
  4. GABAPENTIN [Concomitant]
  5. VICODIN [Concomitant]
  6. OSTEO BIFLEX [Concomitant]
  7. CALCIUM [Concomitant]
  8. VITAMIN D3 [Concomitant]
  9. VITAMIN B12 [Concomitant]
  10. SYNTHROID [Concomitant]
  11. TRAZADONE [Concomitant]
  12. CYMBALTA [Concomitant]
  13. PROVIGIL [Concomitant]
  14. SIMVASTATIN [Concomitant]
  15. LASIX [Concomitant]
  16. POTASSIUM [Concomitant]
  17. ASPIRIN [Concomitant]
     Route: 048
  18. PROZAC [Concomitant]
  19. ISORBIDE [Concomitant]
  20. NORVASC [Concomitant]

REACTIONS (3)
  - Post procedural stroke [Recovered/Resolved with Sequelae]
  - Arterial occlusive disease [Recovered/Resolved]
  - Plaque shift [Unknown]
